FAERS Safety Report 10953654 (Version 1)
Quarter: 2015Q1

REPORT INFORMATION
  Report Type: Spontaneous
  Country: DE (occurrence: SG)
  Receive Date: 20150325
  Receipt Date: 20150325
  Transmission Date: 20150721
  Serious: Yes (Death, Hospitalization)
  Sender: FDA-Public Use
  Company Number: DE-ACTELION-A-US2015-113772

PATIENT
  Age: 71 Year
  Sex: Male

DRUGS (3)
  1. RIOCIGUAT [Suspect]
     Active Substance: RIOCIGUAT
     Indication: IDIOPATHIC PULMONARY FIBROSIS
     Dosage: 0.5 MG, TID
     Route: 048
  2. VENTAVIS [Suspect]
     Active Substance: ILOPROST
     Indication: IDIOPATHIC PULMONARY FIBROSIS
     Dosage: 5 MCG, 5X DAILY
     Route: 055
     Dates: start: 20150213
  3. RIOCIGUAT [Suspect]
     Active Substance: RIOCIGUAT
     Dosage: 1 MG, TID
     Route: 048

REACTIONS (6)
  - Intentional product misuse [Unknown]
  - Death [Fatal]
  - Syncope [Unknown]
  - Lethargy [Unknown]
  - Dizziness [Unknown]
  - Off label use [Unknown]

NARRATIVE: CASE EVENT DATE: 20150316
